FAERS Safety Report 8435577-2 (Version None)
Quarter: 2012Q2

REPORT INFORMATION
  Report Type: 
  Country: None (occurrence: None)
  Receive Date: 20120614
  Receipt Date: 20120605
  Transmission Date: 20120825
  Serious: Yes (Hospitalization, Disabling)
  Sender: FDA-Public Use
  Company Number: CA-JNJFOC-20120603467

PATIENT
  Sex: Male

DRUGS (4)
  1. REMICADE [Suspect]
     Indication: CROHN'S DISEASE
     Route: 042
     Dates: start: 20120505
  2. VITAMIN B-12 [Concomitant]
     Route: 030
  3. VITAMIN D W/ CALCIUM [Concomitant]
     Route: 065
  4. IRON [Concomitant]
     Route: 065

REACTIONS (2)
  - SMALL INTESTINAL PERFORATION [None]
  - INTESTINAL OBSTRUCTION [None]
